FAERS Safety Report 6813778-4 (Version None)
Quarter: 2010Q3

REPORT INFORMATION
  Report Type: 
  Country: None (occurrence: None)
  Receive Date: 20100701
  Receipt Date: 20100623
  Transmission Date: 20110219
  Serious: Yes (Hospitalization, Other)
  Sender: FDA-Public Use
  Company Number: US-AMGEN-KDL420299

PATIENT
  Sex: Female

DRUGS (2)
  1. ENBREL [Suspect]
     Indication: RHEUMATOID ARTHRITIS
     Route: 058
  2. ENBREL [Suspect]
     Indication: PSORIASIS

REACTIONS (8)
  - DYSMENORRHOEA [None]
  - DYSPHONIA [None]
  - OEDEMA PERIPHERAL [None]
  - OOPHORECTOMY [None]
  - PAIN IN EXTREMITY [None]
  - PSORIASIS [None]
  - PYREXIA [None]
  - SCAR [None]
